FAERS Safety Report 9062026 (Version 1)
Quarter: 2013Q1

REPORT INFORMATION
  Report Type: Spontaneous
  Country: US (occurrence: US)
  Receive Date: 20130204
  Receipt Date: 20130204
  Transmission Date: 20140127
  Serious: Yes (Other)
  Sender: FDA-Public Use
  Company Number: PHEH2013US002597

PATIENT
  Sex: Female

DRUGS (1)
  1. EXTAVIA [Suspect]
     Indication: MULTIPLE SCLEROSIS

REACTIONS (4)
  - Type 2 diabetes mellitus [Recovered/Resolved]
  - Hypertension [Recovered/Resolved]
  - Proteinuria [Unknown]
  - Urine albumin/creatinine ratio increased [Unknown]
